FAERS Safety Report 7812587-7 (Version None)
Quarter: 2011Q4

REPORT INFORMATION
  Report Type: 
  Country: None (occurrence: None)
  Receive Date: 20111011
  Receipt Date: 20111003
  Transmission Date: 20120403
  Serious: Yes (Hospitalization, Disabling)
  Sender: FDA-Public Use
  Company Number: WAES 97036185

PATIENT
  Age: 38 Year
  Sex: Female

DRUGS (2)
  1. NOROXIN [Suspect]
     Indication: ESCHERICHIA URINARY TRACT INFECTION
     Dosage: 400 MG/BID
     Route: 048
     Dates: start: 19961101, end: 19961106
  2. ETHINYL ESTRADIOL (+) NORGESTREL FORM [Concomitant]

REACTIONS (8)
  - CHONDROPATHY [None]
  - LIVER DISORDER [None]
  - ARTHRALGIA [None]
  - SELF-MEDICATION [None]
  - TENDON RUPTURE [None]
  - PHOTOSENSITIVITY REACTION [None]
  - TENDONITIS [None]
  - PHLEBITIS [None]
